FAERS Safety Report 7202420-9 (Version None)
Quarter: 2010Q4

REPORT INFORMATION
  Report Type: 
  Country: None (occurrence: None)
  Receive Date: 20101229
  Receipt Date: 20101222
  Transmission Date: 20110411
  Serious: Yes (Other)
  Sender: FDA-Public Use
  Company Number: A0897669A

PATIENT
  Age: 54 Year
  Sex: Male

DRUGS (7)
  1. LOVAZA [Suspect]
     Dosage: 2CAP TWICE PER DAY
     Route: 048
     Dates: start: 20100901, end: 20101125
  2. ASPIRIN [Suspect]
     Indication: INFLAMMATION
     Dosage: 4TAB PER DAY
     Route: 048
     Dates: start: 20101101, end: 20101101
  3. BUSPAR [Concomitant]
  4. TRICOR [Concomitant]
  5. LOVASTATIN [Concomitant]
  6. METFORMIN [Concomitant]
  7. ASPIRIN [Concomitant]

REACTIONS (4)
  - BLOOD GLUCOSE INCREASED [None]
  - DRUG INEFFECTIVE [None]
  - HYPOTENSION [None]
  - NEPHROLITHIASIS [None]
